FAERS Safety Report 9219737 (Version 1)
Quarter: 2013Q2

REPORT INFORMATION
  Report Type: Spontaneous
  Country: US (occurrence: None)
  Receive Date: 20130408
  Receipt Date: 20130408
  Transmission Date: 20140414
  Serious: Yes (Hospitalization)
  Sender: FDA-Public Use
  Company Number: None

PATIENT
  Age: 72 Year
  Sex: Female
  Weight: 57.7 kg

DRUGS (1)
  1. CYTARABINE [Suspect]

REACTIONS (9)
  - Small intestinal obstruction [None]
  - Scar [None]
  - Urinary tract infection [None]
  - Renal failure acute [None]
  - Pneumonia [None]
  - Sepsis [None]
  - Respiratory failure [None]
  - Procedural hypotension [None]
  - Localised infection [None]
